FAERS Safety Report 9278282 (Version 1)
Quarter: 2013Q2

REPORT INFORMATION
  Report Type: Spontaneous
  Country: US (occurrence: None)
  Receive Date: 20130506
  Receipt Date: 20130506
  Transmission Date: 20140414
  Serious: No
  Sender: FDA-Public Use
  Company Number: None

PATIENT
  Age: 36 Year
  Sex: Female

DRUGS (1)
  1. AVONEX [Suspect]
     Indication: MULTIPLE SCLEROSIS
     Dosage: 30 MCG ONCE A WEEK INTRAMUSCULARLY
     Route: 030
     Dates: start: 20130216, end: 20130426

REACTIONS (3)
  - Pain [None]
  - Muscle spasms [None]
  - Tinnitus [None]
